FAERS Safety Report 8814258 (Version 2)
Quarter: 2012Q4

REPORT INFORMATION
  Report Type: Report from Study
  Country: AU (occurrence: AU)
  Receive Date: 20120928
  Receipt Date: 20121022
  Transmission Date: 20130627
  Serious: Yes (Hospitalization)
  Sender: FDA-Public Use
  Company Number: AU-MPIJNJ-2012-06578

PATIENT

DRUGS (6)
  1. VELCADE [Suspect]
     Indication: MULTIPLE MYELOMA
     Dosage: 2.9 mg, Cyclic
     Route: 058
     Dates: start: 20120717
  2. OXYCONTIN [Concomitant]
     Dosage: 40 mg, UNK
  3. TRAMADOL [Concomitant]
     Dosage: 100 mg, bid
  4. PANADOL OSTEO [Concomitant]
  5. DOCUSATE SODIUM W/SENNA [Concomitant]
  6. ROSUVASTATIN [Concomitant]
     Dosage: 10 mg, UNK

REACTIONS (2)
  - Pyrexia [Recovering/Resolving]
  - Haemoglobin decreased [Recovering/Resolving]
